FAERS Safety Report 20422854 (Version 1)
Quarter: 2022Q1

REPORT INFORMATION
  Report Type: Spontaneous
  Country: US (occurrence: None)
  Receive Date: 20220203
  Receipt Date: 20220203
  Transmission Date: 20220423
  Serious: Yes (Hospitalization)
  Sender: FDA-Public Use
  Company Number: None

PATIENT
  Age: 85 Year
  Sex: Male

DRUGS (19)
  1. SOTROVIMAB [Suspect]
     Active Substance: SOTROVIMAB
     Indication: COVID-19
     Dosage: FREQUENCY : ONCE;?
     Route: 042
     Dates: start: 20220121, end: 20220121
  2. albuterol HFA 90 mcg/actuation inhaler [Concomitant]
  3. amLODIPine (NORVASC) 5 mg tablet [Concomitant]
  4. ascorbic acid, vitamin C, (VITAMIN C) 1,000 mg tablet [Concomitant]
  5. aspirin, buffered (BUFFERIN) 81 mg tablet [Concomitant]
  6. chlorpheniramine (CHLOR-TRIMETON) 4 mg tablet [Concomitant]
  7. cholecalciferol, vitamin D3, (VITAMIN D3) 1,000 unit tablet [Concomitant]
  8. dorzolamide-timolol (COSOPT) 22.3-6.8 mg/mL ophthalmic solution [Concomitant]
  9. doxazosin (CARDURA) 4 mg tablet [Concomitant]
  10. doxycycline (VIBRAMYCIN) 100 mg capsule [Concomitant]
  11. hydroCHLOROthiazide (HYDRODIURIL) 12.5 mg tablet [Concomitant]
  12. latanoprost (XALATAN) 0.005 % ophthalmic solution [Concomitant]
  13. loratadine (CLARITIN) 10 mg tablet [Concomitant]
  14. magnesium 250 mg tablet [Concomitant]
  15. multivitamin with minerals tablet [Concomitant]
  16. simvastatin (ZOCOR) 20 mg tablet [Concomitant]
  17. VITAMIN B COMPLEX ORAL [Concomitant]
  18. Wixela Inhub 100-50 mcg/dose diskus inhaler [Concomitant]
  19. zinc gluconate 50 mg tablet [Concomitant]

REACTIONS (6)
  - Hypoxia [None]
  - Contusion [None]
  - Acute respiratory failure [None]
  - Pneumonitis [None]
  - Fall [None]
  - Oedema [None]

NARRATIVE: CASE EVENT DATE: 20220123
